FAERS Safety Report 8343708-8 (Version None)
Quarter: 2012Q2

REPORT INFORMATION
  Report Type: 
  Country: None (occurrence: None)
  Receive Date: 20120508
  Receipt Date: 20120131
  Transmission Date: 20120825
  Serious: No
  Sender: FDA-Public Use
  Company Number: -BAUSCH-2012BL000781

PATIENT
  Age: 65 Year
  Sex: Female

DRUGS (3)
  1. LOTEMAX [Suspect]
     Indication: EYE PRURITUS
     Route: 047
     Dates: start: 20120127, end: 20120128
  2. LOTEMAX [Suspect]
     Indication: EYE SWELLING
     Route: 047
     Dates: start: 20120127, end: 20120128
  3. LOTEMAX [Suspect]
     Indication: EYE ALLERGY
     Route: 047
     Dates: start: 20120127, end: 20120128

REACTIONS (2)
  - EYE IRRITATION [None]
  - EYE PAIN [None]
